FAERS Safety Report 22061836 (Version 1)
Quarter: 2023Q1

REPORT INFORMATION
  Report Type: Spontaneous
  Country: CA (occurrence: CA)
  Receive Date: 20230304
  Receipt Date: 20230304
  Transmission Date: 20230418
  Serious: Yes (Other)
  Sender: FDA-Public Use
  Company Number: CA-CELLTRION INC.-2021CA008844

PATIENT

DRUGS (23)
  1. INFLECTRA [Suspect]
     Active Substance: INFLIXIMAB-DYYB
     Indication: Crohn^s disease
     Dosage: 300 MG, 0, 2, 6, THEN EVERY 8 WEEKS
     Route: 042
     Dates: start: 20210331, end: 20210512
  2. INFLECTRA [Suspect]
     Active Substance: INFLIXIMAB-DYYB
     Dosage: 300 MG, 0, 2, 6, THEN EVERY 8 WEEKS
     Route: 042
     Dates: start: 20210618, end: 20210618
  3. INFLECTRA [Suspect]
     Active Substance: INFLIXIMAB-DYYB
     Dosage: 600 MG, RESCUE DOSE
     Route: 042
     Dates: start: 20210619, end: 20210619
  4. INFLECTRA [Suspect]
     Active Substance: INFLIXIMAB-DYYB
     Dosage: 10 MG/KG (600 MG) EVERY 4 WEEKS
     Route: 042
     Dates: start: 20210619
  5. INFLECTRA [Suspect]
     Active Substance: INFLIXIMAB-DYYB
     Dosage: 300 MG, AT 0, 2, 6, THEN EVERY 8 WEEKS
     Route: 042
     Dates: start: 20210721
  6. INFLECTRA [Suspect]
     Active Substance: INFLIXIMAB-DYYB
     Dosage: 10 MG/KG (600 MG) EVERY 4 WEEKS
     Route: 042
     Dates: start: 20210721, end: 20220506
  7. INFLECTRA [Suspect]
     Active Substance: INFLIXIMAB-DYYB
     Dosage: 10 MG/KG (600 MG) EVERY 4 WEEKS
     Route: 042
     Dates: start: 20210920, end: 20210920
  8. INFLECTRA [Suspect]
     Active Substance: INFLIXIMAB-DYYB
     Dosage: 10 MG/KG (600 MG) EVERY 4 WEEKS
     Route: 042
     Dates: start: 20211020
  9. INFLECTRA [Suspect]
     Active Substance: INFLIXIMAB-DYYB
     Dosage: 10 MG/KG (600 MG) EVERY 4 WEEKS
     Route: 042
     Dates: start: 20211116
  10. INFLECTRA [Suspect]
     Active Substance: INFLIXIMAB-DYYB
     Dosage: 10 MG/KG (600 MG) EVERY 4 WEEKS
     Route: 042
     Dates: start: 20211214
  11. INFLECTRA [Suspect]
     Active Substance: INFLIXIMAB-DYYB
     Dosage: 10 MG/KG (600 MG) EVERY 4 WEEKS
     Route: 042
     Dates: start: 20220112
  12. INFLECTRA [Suspect]
     Active Substance: INFLIXIMAB-DYYB
     Dosage: 10 MG/KG (600 MG) EVERY 4 WEEKS
     Route: 042
     Dates: start: 20220209
  13. INFLECTRA [Suspect]
     Active Substance: INFLIXIMAB-DYYB
     Dosage: 10 MG/KG (600 MG) EVERY 4 WEEKS
     Route: 042
     Dates: start: 20220506
  14. INFLECTRA [Suspect]
     Active Substance: INFLIXIMAB-DYYB
     Dosage: 10 MG/KG (600 MG) EVERY 4 WEEKS
     Route: 042
     Dates: start: 20220506
  15. INFLECTRA [Suspect]
     Active Substance: INFLIXIMAB-DYYB
     Dosage: 12.5 MG/KG (700 MG) EVERY 4 WEEKS
     Route: 042
     Dates: start: 20220606, end: 20220606
  16. INFLECTRA [Suspect]
     Active Substance: INFLIXIMAB-DYYB
     Dosage: 800 MG,(13.11 MG/ KG) EVERY 4 WEEKS
     Route: 042
     Dates: start: 20220707
  17. INFLECTRA [Suspect]
     Active Substance: INFLIXIMAB-DYYB
     Dosage: 800 MG,(13.11 MG/ KG) EVERY 4 WEEKS
     Route: 042
     Dates: start: 20220804
  18. INFLECTRA [Suspect]
     Active Substance: INFLIXIMAB-DYYB
     Dosage: 800 MG,(13.11 MG/ KG) EVERY 4 WEEKS
     Route: 042
     Dates: start: 20220929
  19. INFLECTRA [Suspect]
     Active Substance: INFLIXIMAB-DYYB
     Dosage: 800 MG (13.11MG/KG) EVERY 4 WEEKS
     Route: 042
     Dates: start: 20221027
  20. INFLECTRA [Suspect]
     Active Substance: INFLIXIMAB-DYYB
     Dosage: 800 MG (13.11MG/KG) EVERY 4 WEEKS
     Route: 042
     Dates: start: 20221124
  21. INFLECTRA [Suspect]
     Active Substance: INFLIXIMAB-DYYB
     Dosage: 800 MG (13.11MG/KG) EVERY 4 WEEKS
     Route: 042
     Dates: start: 20221222
  22. INFLECTRA [Suspect]
     Active Substance: INFLIXIMAB-DYYB
     Dosage: 800MG EVERY 4 WEEKS
     Route: 042
     Dates: start: 20230119
  23. INFLECTRA [Suspect]
     Active Substance: INFLIXIMAB-DYYB
     Dosage: 800MG, 4 WEEKS
     Route: 042
     Dates: start: 20230222

REACTIONS (21)
  - Norovirus infection [Recovered/Resolved]
  - Treatment failure [Unknown]
  - Therapeutic product effect incomplete [Unknown]
  - Off label use [Unknown]
  - Off label use [Unknown]
  - Off label use [Unknown]
  - Intentional product use issue [Unknown]
  - Inappropriate schedule of product administration [Unknown]
  - Product use issue [Unknown]
  - Condition aggravated [Recovering/Resolving]
  - Female genital tract fistula [Not Recovered/Not Resolved]
  - Illness [Not Recovered/Not Resolved]
  - Abscess [Not Recovered/Not Resolved]
  - Arthralgia [Unknown]
  - Hand-foot-and-mouth disease [Recovered/Resolved]
  - Nasopharyngitis [Recovered/Resolved]
  - Anal fistula [Not Recovered/Not Resolved]
  - COVID-19 [Recovered/Resolved]
  - Gastric disorder [Not Recovered/Not Resolved]
  - Influenza [Not Recovered/Not Resolved]
  - Aphthous ulcer [Unknown]

NARRATIVE: CASE EVENT DATE: 20210618
